FAERS Safety Report 9148305 (Version 1)
Quarter: 2013Q1

REPORT INFORMATION
  Report Type: Spontaneous
  Country: US (occurrence: None)
  Receive Date: 20130220
  Receipt Date: 20130220
  Transmission Date: 20140127
  Serious: Yes (Death, Hospitalization)
  Sender: FDA-Public Use
  Company Number: UTC-028893

PATIENT
  Age: 67 Year
  Sex: Male
  Weight: 88 kg

DRUGS (8)
  1. REMODULIN (INJECTION FOR INFUSION) (TREPROSTINIL SODIUM) [Suspect]
     Indication: PULMONARY ARTERIAL HYPERTENSION
     Dosage: 2.88 UG/KG (0.002 UG/KG, 1 IN 1 MIN)
     Route: 041
     Dates: start: 20130131
  2. TYVASO (6 MICROGRAM, AEROSOL FOR INHALATION) (TREPROSTINIL SODIUM) [Suspect]
     Indication: PULMONARY ARTERIAL HYPERTENSION
     Route: 055
  3. ADCIRCA (TADALAFIL) [Concomitant]
  4. FUROSEMIDE [Concomitant]
  5. EPLERENONE [Concomitant]
  6. BOSENTAN (UNKNOWN) [Concomitant]
  7. DIGOXIN (UNKNOWN) [Concomitant]
  8. LETAIRIS (AMBRISENTAN) (UNKNOWN) [Concomitant]

REACTIONS (19)
  - Subdural haematoma [None]
  - Brain herniation [None]
  - Cardio-respiratory arrest [None]
  - Fall [None]
  - Syncope [None]
  - Pericardial effusion [None]
  - Dilatation ventricular [None]
  - Diarrhoea [None]
  - Nausea [None]
  - Dizziness [None]
  - Loss of consciousness [None]
  - Aortic valve incompetence [None]
  - Mitral valve incompetence [None]
  - Tricuspid valve incompetence [None]
  - No therapeutic response [None]
  - Tachypnoea [None]
  - Tremor [None]
  - Agitation [None]
  - Seizure like phenomena [None]
